FAERS Safety Report 8085469 (Version 2)
Quarter: 2014Q1

REPORT INFORMATION
  Report Type: Spontaneous
  Country: US (occurrence: None)
  Receive Date: 20110711
  Receipt Date: 20140219
  Transmission Date: 20141002
  Serious: Yes (Other)
  Sender: FDA-Public Use
  Company Number: IPC201104-000684

PATIENT
  Sex: 0

DRUGS (2)
  1. METOCLOPRAMIDE HYDROCHLORIDE [Suspect]
     Dates: start: 2006, end: 2010
  2. REGLAN [Suspect]
     Dates: start: 2006, end: 2010

REACTIONS (7)
  - Tardive dyskinesia [None]
  - Dystonia [None]
  - Chorea [None]
  - Parkinson^s disease [None]
  - Tremor [None]
  - Extrapyramidal disorder [None]
  - Dyskinesia [None]
